FAERS Safety Report 15584237 (Version 1)
Quarter: 2018Q4

REPORT INFORMATION
  Report Type: Spontaneous
  Country: US (occurrence: US)
  Receive Date: 20181031
  Receipt Date: 20181031
  Transmission Date: 20190205
  Serious: No
  Sender: FDA-Public Use
  Company Number: None

PATIENT
  Age: 43 Year
  Sex: Female

DRUGS (1)
  1. CAPECITABINE TAB 500MG [Suspect]
     Active Substance: CAPECITABINE
     Route: 048
     Dates: start: 201809

REACTIONS (4)
  - Muscle tightness [None]
  - Skin discolouration [None]
  - Fatigue [None]
  - Hyperaesthesia [None]

NARRATIVE: CASE EVENT DATE: 20181030
